FAERS Safety Report 21425614 (Version 1)
Quarter: 2022Q4

REPORT INFORMATION
  Report Type: Report from Study
  Country: US (occurrence: US)
  Receive Date: 20221008
  Receipt Date: 20221008
  Transmission Date: 20230113
  Serious: No
  Sender: FDA-Public Use
  Company Number: US-ABBVIE-4130884

PATIENT
  Age: 83 Year
  Sex: Female

DRUGS (1)
  1. HUMIRA [Suspect]
     Active Substance: ADALIMUMAB
     Indication: Rheumatoid arthritis
     Dosage: CITRATE FREE
     Route: 058

REACTIONS (10)
  - Amnesia [Not Recovered/Not Resolved]
  - Alopecia [Unknown]
  - Headache [Unknown]
  - Blood pressure increased [Not Recovered/Not Resolved]
  - Gait disturbance [Unknown]
  - Unevaluable event [Unknown]
  - Illness [Unknown]
  - Product packaging issue [Not Recovered/Not Resolved]
  - Vertigo [Unknown]
  - Tinnitus [Unknown]

NARRATIVE: CASE EVENT DATE: 20220701
